FAERS Safety Report 12999195 (Version 2)
Quarter: 2016Q4

REPORT INFORMATION
  Report Type: Spontaneous
  Country: US (occurrence: US)
  Receive Date: 20161205
  Receipt Date: 20161220
  Transmission Date: 20170207
  Serious: No
  Sender: FDA-Public Use
  Company Number: US-GLAXOSMITHKLINE-US2016177394

PATIENT
  Age: 23 Year
  Sex: Female
  Weight: 64.85 kg

DRUGS (1)
  1. NUCALA [Suspect]
     Active Substance: MEPOLIZUMAB
     Indication: ASTHMA
     Dosage: 100 MG, CYC
     Route: 058
     Dates: start: 201506, end: 201611

REACTIONS (3)
  - Biopsy tongue normal [Unknown]
  - Biopsy tongue [Unknown]
  - Glossitis [Unknown]

NARRATIVE: CASE EVENT DATE: 2015
